FAERS Safety Report 5494944-X (Version None)
Quarter: 2007Q4

REPORT INFORMATION
  Report Type: 
  Country: None (occurrence: None)
  Receive Date: 20071024
  Receipt Date: 20071023
  Transmission Date: 20080405
  Serious: Yes (Other)
  Sender: FDA-Public Use
  Company Number: A0689253A

PATIENT
  Age: 68 Year
  Sex: Female

DRUGS (17)
  1. LAMICTAL [Suspect]
     Indication: BIPOLAR DISORDER
     Dosage: 100MG PER DAY
     Route: 048
     Dates: start: 20070801
  2. LYRICA [Concomitant]
  3. BACLOFEN [Concomitant]
  4. SPIRIVA [Concomitant]
  5. ALBUTEROL [Concomitant]
  6. ADVAIR DISKUS 100/50 [Concomitant]
  7. UNSPECIFIED MEDICATION [Concomitant]
  8. NASONEX [Concomitant]
  9. LASIX [Concomitant]
  10. POTASSIUM CHLORIDE [Concomitant]
  11. NEXIUM [Concomitant]
  12. KLONOPIN [Concomitant]
  13. ASCORBIC ACID [Concomitant]
  14. COQ10 [Concomitant]
  15. FISH OIL [Concomitant]
  16. CRYSTALLINE VIT B12 INJ [Concomitant]
  17. KEFLEX [Concomitant]

REACTIONS (6)
  - ABDOMINAL DISTENSION [None]
  - ABDOMINAL PAIN UPPER [None]
  - CELLULITIS [None]
  - COORDINATION ABNORMAL [None]
  - DIZZINESS [None]
  - NIPPLE PAIN [None]
